FAERS Safety Report 24613164 (Version 2)
Quarter: 2025Q4

REPORT INFORMATION
  Report Type: Report from Study
  Country: US (occurrence: US)
  Receive Date: 20241113
  Receipt Date: 20251226
  Transmission Date: 20260117
  Serious: Yes (Death, Other)
  Sender: JOHNSON AND JOHNSON
  Company Number: US-JNJFOC-20241125739

PATIENT
  Age: 65 Year
  Sex: Female

DRUGS (1)
  1. CILTACABTAGENE AUTOLEUCEL [Suspect]
     Active Substance: CILTACABTAGENE AUTOLEUCEL
     Indication: Plasma cell myeloma
     Dosage: TOTAL NUMBER OF CELLS ADMINISTERED - 53.76; TOTAL CELLS EXPONENT VALUE - 6; NUMBER OF LINES OF PRIOR THERAPIES (INCLUDING CT AND HCT) - 6

REACTIONS (2)
  - Neoplasm malignant [Fatal]
  - Lung neoplasm malignant [Unknown]
